FAERS Safety Report 4305093-8 (Version None)
Quarter: 2004Q1

REPORT INFORMATION
  Report Type: 
  Country: None (occurrence: None)
  Receive Date: 20040224
  Receipt Date: 20040224
  Transmission Date: 20041129
  Serious: Yes (Other)
  Sender: FDA-Public Use
  Company Number: None

PATIENT
  Age: 78 Year
  Sex: Male
  Weight: 106.1 kg

DRUGS (13)
  1. PENICILLIN [Suspect]
  2. CASTOR OIL/PERUVIAN BALSAM/TRYPSIN [Concomitant]
  3. GATIFLOXACIN [Concomitant]
  4. DIPHENHYDRAMINE HCL [Concomitant]
  5. ZINC SULFATE [Concomitant]
  6. HYDROXYURIEA [Concomitant]
  7. GLYBURIDE [Concomitant]
  8. IBUPROFEN [Concomitant]
  9. ACETAMINOPHEN [Concomitant]
  10. SODIUM CHLORIDE INJ [Concomitant]
  11. MILK OF MAGNESIA TAB [Concomitant]
  12. BISACODYL [Concomitant]
  13. PENICILLIN G POTASSIUM [Concomitant]

REACTIONS (1)
  - RASH [None]
